FAERS Safety Report 9870804 (Version 1)
Quarter: 2014Q1

REPORT INFORMATION
  Report Type: Spontaneous
  Country: RO (occurrence: RO)
  Receive Date: 20140205
  Receipt Date: 20140205
  Transmission Date: 20141002
  Serious: Yes (Life-Threatening, Hospitalization, Other)
  Sender: FDA-Public Use
  Company Number: RO-ACTAVIS-2014-01298

PATIENT
  Age: 42 Year
  Sex: Male

DRUGS (15)
  1. IRINOTECAN (UNKNOWN) [Suspect]
     Indication: COLORECTAL CANCER METASTATIC
     Dosage: UNK, 18 CYCLES
     Route: 013
     Dates: start: 201009, end: 201108
  2. IRINOTECAN (UNKNOWN) [Suspect]
     Dosage: UNK, 1 CYCLE
     Route: 065
  3. CALCIUM FOLINATE (UNKNOWN) [Suspect]
     Indication: COLORECTAL CANCER METASTATIC
     Dosage: UNK, 3 CYCLES
     Route: 065
  4. CALCIUM FOLINATE (UNKNOWN) [Suspect]
     Dosage: UNK, 7 CYCLES
     Route: 065
  5. OXALIPLATIN (UNKNOWN) [Suspect]
     Indication: COLORECTAL CANCER METASTATIC
     Dosage: UNK, 3 CYCLES
     Route: 065
  6. OXALIPLATIN (UNKNOWN) [Suspect]
     Dosage: UNK, 7 CYCLES
     Route: 065
  7. CAPECITABINE (UNKNOWN) [Suspect]
     Indication: COLORECTAL CANCER METASTATIC
     Dosage: UNK, 1 CYCLE
     Route: 065
     Dates: start: 201109, end: 201110
  8. CAPECITABINE (UNKNOWN) [Suspect]
     Dosage: UNK, 1 CYCLE
     Route: 065
  9. 5 FLUOROURACIL /00098801/ [Suspect]
     Indication: COLORECTAL CANCER METASTATIC
     Dosage: UNK, 3 CYCLES
     Route: 065
  10. 5 FLUOROURACIL /00098801/ [Suspect]
     Dosage: UNK, 7 CYCLES
     Route: 065
  11. BEVACIZUMAB [Suspect]
     Indication: COLORECTAL CANCER METASTATIC
     Dosage: UNK, 1 CYCLES
     Route: 065
  12. BEVACIZUMAB [Suspect]
     Dosage: UNK, 3 CYCLES
     Route: 065
  13. BEVACIZUMAB [Suspect]
     Dosage: UNK, 7 CYCLES
     Route: 065
  14. CETUXIMAB [Suspect]
     Indication: COLORECTAL CANCER METASTATIC
     Dosage: UNK, 18 CYCLES
     Dates: start: 201009, end: 201108
  15. SUTENT [Suspect]
     Indication: COLORECTAL CANCER METASTATIC
     Dosage: UNK, 1 CYCLE
     Route: 065
     Dates: start: 201109, end: 201110

REACTIONS (3)
  - Subacute hepatic failure [Not Recovered/Not Resolved]
  - Cholestasis [Not Recovered/Not Resolved]
  - Liver transplant [Recovered/Resolved]
